FAERS Safety Report 18097963 (Version 2)
Quarter: 2020Q4

REPORT INFORMATION
  Report Type: Spontaneous
  Country: US (occurrence: US)
  Receive Date: 20200731
  Receipt Date: 20201022
  Transmission Date: 20210113
  Serious: Yes (Other)
  Sender: FDA-Public Use
  Company Number: US-BAYER-2020-151444

PATIENT
  Age: 22 Year
  Sex: Male

DRUGS (3)
  1. HEMLIBRA [Concomitant]
     Active Substance: EMICIZUMAB-KXWH
  2. KOGENATE FS [Suspect]
     Active Substance: ANTIHEMOPHILIC FACTOR, HUMAN RECOMBINANT
     Indication: FACTOR VIII DEFICIENCY
     Dosage: 3000 U, QD
     Route: 042
     Dates: start: 201910
  3. KOGENATE FS [Suspect]
     Active Substance: ANTIHEMOPHILIC FACTOR, HUMAN RECOMBINANT
     Indication: FACTOR VIII DEFICIENCY
     Dosage: 2 DF, ONCE, TREATMENT FOR BLEED IN BOTH FEET
     Route: 042

REACTIONS (1)
  - Haemorrhage [Unknown]
